FAERS Safety Report 20562450 (Version 1)
Quarter: 2022Q1

REPORT INFORMATION
  Report Type: Report from Study
  Country: JP (occurrence: JP)
  Receive Date: 20220307
  Receipt Date: 20220307
  Transmission Date: 20220423
  Serious: Yes (Hospitalization)
  Sender: FDA-Public Use
  Company Number: JP-ACE-536-MDS-004-2041001-20220228-0004SG

PATIENT
  Age: 73 Year
  Sex: Female
  Weight: 48 kg

DRUGS (4)
  1. LUSPATERCEPT [Suspect]
     Active Substance: LUSPATERCEPT
     Indication: Anaemia of malignant disease
     Dosage: 51.2 MG X 1 X 3 WEEKS
     Route: 058
     Dates: start: 20210208
  2. BISOPROLOL FUMARATE [Suspect]
     Active Substance: BISOPROLOL FUMARATE
     Indication: Arrhythmia
     Dosage: 0.625 MG X 1 X 1 DAYS
     Route: 048
     Dates: start: 20211012
  3. FUROSEMIDE [Concomitant]
     Active Substance: FUROSEMIDE
     Indication: Cardiac failure chronic
     Dosage: 10 X 1 X 1 DAYS
     Route: 048
     Dates: start: 20190702
  4. LANSOPRAZOLE [Concomitant]
     Active Substance: LANSOPRAZOLE
     Indication: Prophylaxis
     Dosage: 15 X 1 X 1 DAYS
     Route: 048
     Dates: start: 20210302

REACTIONS (1)
  - Hyperglycaemia [Not Recovered/Not Resolved]

NARRATIVE: CASE EVENT DATE: 20211221
